FAERS Safety Report 7340334-4 (Version None)
Quarter: 2011Q1

REPORT INFORMATION
  Report Type: 
  Country: None (occurrence: None)
  Receive Date: 20110309
  Receipt Date: 20110301
  Transmission Date: 20110831
  Serious: No
  Sender: FDA-Public Use
  Company Number: US-BIOGENIDEC-2011BI002560

PATIENT
  Sex: Male

DRUGS (1)
  1. TYSABRI [Suspect]
     Indication: MULTIPLE SCLEROSIS
     Route: 042
     Dates: start: 20100325

REACTIONS (5)
  - ARTHRALGIA [None]
  - DIZZINESS [None]
  - BODY TEMPERATURE INCREASED [None]
  - FATIGUE [None]
  - URINARY TRACT INFECTION [None]
